FAERS Safety Report 7559307-1 (Version None)
Quarter: 2011Q2

REPORT INFORMATION
  Report Type: 
  Country: None (occurrence: None)
  Receive Date: 20110613
  Receipt Date: 20110607
  Transmission Date: 20111010
  Serious: Yes (Hospitalization)
  Sender: FDA-Public Use
  Company Number: 2011060105

PATIENT
  Age: 10 Year
  Sex: Male

DRUGS (3)
  1. FELBATOL [Suspect]
     Indication: CONVULSION
     Dosage: 1200 MG (600 MG, 2 IN 1 D), ORAL
     Route: 048
     Dates: start: 20050601
  2. CLOBAZAM (CLOBAZAM) [Concomitant]
  3. VIMPAT [Concomitant]

REACTIONS (2)
  - OROPHARYNGEAL PAIN [None]
  - GASTROOESOPHAGEAL REFLUX DISEASE [None]
